FAERS Safety Report 5810858-7 (Version None)
Quarter: 2008Q3

REPORT INFORMATION
  Report Type: 
  Country: None (occurrence: None)
  Receive Date: 20080710
  Receipt Date: 20080626
  Transmission Date: 20090109
  Serious: Yes (Hospitalization)
  Sender: FDA-Public Use
  Company Number: VNL_01153_2008

PATIENT
  Age: 79 Year
  Sex: Male

DRUGS (2)
  1. APOKYN [Suspect]
     Indication: PARKINSON'S DISEASE
     Dosage: (0.2 ML FREQUENCY UNKNOWN SUBCUTANEOUS), (0.3 ML FREQUENCY UNKNOWN SUBCUTANEOUS)
     Route: 058
     Dates: end: 20080620
  2. APOKYN [Suspect]
     Indication: PARKINSON'S DISEASE
     Dosage: (0.2 ML FREQUENCY UNKNOWN SUBCUTANEOUS), (0.3 ML FREQUENCY UNKNOWN SUBCUTANEOUS)
     Route: 058
     Dates: start: 20080620

REACTIONS (3)
  - CONDITION AGGRAVATED [None]
  - PARKINSON'S DISEASE [None]
  - RESPIRATORY TRACT INFECTION [None]
